FAERS Safety Report 7276053-2 (Version None)
Quarter: 2011Q1

REPORT INFORMATION
  Report Type: 
  Country: None (occurrence: None)
  Receive Date: 20110204
  Receipt Date: 20110128
  Transmission Date: 20110831
  Serious: Yes (Hospitalization)
  Sender: FDA-Public Use
  Company Number: B0698042A

PATIENT
  Sex: Male

DRUGS (2)
  1. ZYLORIC [Concomitant]
  2. AMOXICILLIN AND CLAVULANATE POTASSIUM [Suspect]
     Dosage: 1UNIT PER DAY
     Route: 048
     Dates: start: 20100929, end: 20100929

REACTIONS (3)
  - ERYTHEMA [None]
  - PRURITUS [None]
  - DYSPNOEA [None]
